FAERS Safety Report 17758003 (Version 6)
Quarter: 2020Q3

REPORT INFORMATION
  Report Type: Report from Study
  Country: CA (occurrence: CA)
  Receive Date: 20200507
  Receipt Date: 20200807
  Transmission Date: 20201102
  Serious: Yes (Hospitalization, Other)
  Sender: FDA-Public Use
  Company Number: CA-JNJFOC-20200438857

PATIENT
  Age: 10 Year
  Sex: Male
  Weight: 27 kg

DRUGS (5)
  1. REMICADE [Suspect]
     Active Substance: INFLIXIMAB
     Indication: CROHN^S DISEASE
     Dosage: ON 03?JUN?2020, THE PATIENT RECEIVED 3RD 200 MG INFLIXIMAB INFUSION
     Route: 042
     Dates: start: 20200419
  2. REMICADE [Suspect]
     Active Substance: INFLIXIMAB
     Route: 042
  3. REMICADE [Suspect]
     Active Substance: INFLIXIMAB
     Route: 042
  4. REMICADE [Suspect]
     Active Substance: INFLIXIMAB
     Route: 042
  5. REMICADE [Suspect]
     Active Substance: INFLIXIMAB
     Dosage: WOULD INCREASE TO 300 MG EVERY 2 WEEKS AND THEN 300 MG EVERY 4 WEEKS
     Route: 042

REACTIONS (5)
  - Crohn^s disease [Unknown]
  - Product use issue [Unknown]
  - Drug level decreased [Unknown]
  - Off label use [Unknown]
  - Infection [Unknown]

NARRATIVE: CASE EVENT DATE: 202004
